FAERS Safety Report 19211959 (Version 1)
Quarter: 2021Q2

REPORT INFORMATION
  Report Type: Report from Study
  Country: IT (occurrence: IT)
  Receive Date: 20210504
  Receipt Date: 20210504
  Transmission Date: 20210717
  Serious: Yes (Other)
  Sender: FDA-Public Use
  Company Number: IT-GLAXOSMITHKLINE-IT2021EME095153

PATIENT
  Age: 49 Year
  Sex: Female

DRUGS (1)
  1. NIRAPARIB [Suspect]
     Active Substance: NIRAPARIB
     Indication: OVARIAN CANCER
     Dosage: 300 MG
     Dates: start: 202006, end: 202011

REACTIONS (3)
  - Pleural effusion [Unknown]
  - Carbohydrate antigen 125 increased [Unknown]
  - Malignant peritoneal neoplasm [Unknown]
